FAERS Safety Report 18760661 (Version 1)
Quarter: 2021Q1

REPORT INFORMATION
  Report Type: Spontaneous
  Country: US (occurrence: US)
  Receive Date: 20210119
  Receipt Date: 20210119
  Transmission Date: 20210419
  Serious: No
  Sender: FDA-Public Use
  Company Number: US-PFIZER INC-2021026464

PATIENT
  Age: 46 Year
  Sex: Female
  Weight: 63.5 kg

DRUGS (1)
  1. SPIRONOLACTONE. [Suspect]
     Active Substance: SPIRONOLACTONE
     Indication: ACNE
     Dosage: 5 MG, (ONE TO TWO TABLETS PER NIGHT)
     Dates: start: 202008

REACTIONS (3)
  - Breast tenderness [Unknown]
  - Breast discomfort [Unknown]
  - Off label use [Unknown]
